FAERS Safety Report 21313664 (Version 1)
Quarter: 2022Q3

REPORT INFORMATION
  Report Type: Report from Study
  Country: IN (occurrence: None)
  Receive Date: 20220909
  Receipt Date: 20220909
  Transmission Date: 20221027
  Serious: Yes (Death)
  Sender: FDA-Public Use
  Company Number: 2022A312238

PATIENT
  Age: 78 Year
  Sex: Female
  Weight: 79 kg

DRUGS (1)
  1. LYNPARZA [Suspect]
     Active Substance: OLAPARIB
     Indication: Prophylaxis
     Route: 048
     Dates: start: 20220618

REACTIONS (1)
  - Death [Fatal]

NARRATIVE: CASE EVENT DATE: 20220727
